FAERS Safety Report 14453285 (Version 2)
Quarter: 2018Q2

REPORT INFORMATION
  Report Type: Report from Study
  Country: JP (occurrence: JP)
  Receive Date: 20180129
  Receipt Date: 20180409
  Transmission Date: 20180711
  Serious: Yes (Hospitalization, Other)
  Sender: FDA-Public Use
  Company Number: JP-ACTELION-A-CH2017-148484

PATIENT
  Sex: Male

DRUGS (44)
  1. EPOPROSTENOL ACT [Suspect]
     Active Substance: EPOPROSTENOL
     Dosage: 44.68 NG/KG, PER MIN
     Route: 042
     Dates: start: 20160106
  2. ADCIRCA [Suspect]
     Active Substance: TADALAFIL
     Dosage: 30 MG, QD
     Route: 048
     Dates: end: 20160630
  3. ADCIRCA [Suspect]
     Active Substance: TADALAFIL
     Dosage: 20 MG, BID
     Route: 048
     Dates: start: 20160701
  4. XYZAL [Concomitant]
     Active Substance: LEVOCETIRIZINE DIHYDROCHLORIDE
  5. CEFAZOLIN [Concomitant]
     Active Substance: CEFAZOLIN
  6. BAKTAR [Concomitant]
     Active Substance: SULFAMETHOXAZOLE\TRIMETHOPRIM
  7. PREDONINE [Concomitant]
     Active Substance: PREDNISOLONE
  8. EPOPROSTENOL ACT [Suspect]
     Active Substance: EPOPROSTENOL
     Dosage: 19.86 NG/KG, PER MIN
     Route: 042
  9. EPOPROSTENOL ACT [Suspect]
     Active Substance: EPOPROSTENOL
     Dosage: 54.26 NG/KG, PER MIN
     Route: 042
  10. EPOPROSTENOL ACT [Suspect]
     Active Substance: EPOPROSTENOL
     Dosage: 54.6 NG/KG, PER MIN
     Route: 042
     Dates: start: 20160418
  11. EPOPROSTENOL ACT [Suspect]
     Active Substance: EPOPROSTENOL
     Dosage: 72.73 NG/KG, PER MIN
     Route: 042
     Dates: end: 20160803
  12. EPOPROSTENOL ACT [Suspect]
     Active Substance: EPOPROSTENOL
     Dosage: 100.6 NG/KG, PER MIN
     Route: 042
  13. EPOPROSTENOL ACT [Suspect]
     Active Substance: EPOPROSTENOL
     Dosage: 30.6 NG/KG, PER MIN
     Route: 042
  14. ADCIRCA [Suspect]
     Active Substance: TADALAFIL
     Dosage: 5 MG, BID
     Route: 048
     Dates: start: 20160511, end: 20160619
  15. ADCIRCA [Suspect]
     Active Substance: TADALAFIL
     Dosage: 5 MG, TID
     Route: 048
     Dates: start: 20160620
  16. OXYGEN. [Concomitant]
     Active Substance: OXYGEN
  17. EPOPROSTENOL ACT [Suspect]
     Active Substance: EPOPROSTENOL
     Dosage: 57.45 NG/KG, PER MIN
     Route: 042
  18. EPOPROSTENOL ACT [Suspect]
     Active Substance: EPOPROSTENOL
     Dosage: 59.04 NG/KG, PER MIN
     Route: 042
     Dates: start: 20160615
  19. ADEMPAS [Suspect]
     Active Substance: RIOCIGUAT
     Dosage: 2.5 MG, TID
     Route: 048
     Dates: start: 20150815, end: 20161208
  20. ADEMPAS [Suspect]
     Active Substance: RIOCIGUAT
     Dosage: 2 MG, TID
     Route: 048
     Dates: start: 20161209, end: 20161212
  21. ALDACTONE [Concomitant]
     Active Substance: SPIRONOLACTONE
  22. ADONA [Suspect]
     Active Substance: CARBAZOCHROME SODIUM SULFONATE
     Indication: PRODUCT USED FOR UNKNOWN INDICATION
     Dosage: UNK
     Route: 065
     Dates: end: 20161025
  23. EPOPROSTENOL ACT [Suspect]
     Active Substance: EPOPROSTENOL
     Indication: PULMONARY ARTERIAL HYPERTENSION
     Dosage: 0.35 NG/KG, PER MIN
     Route: 042
     Dates: start: 20150807, end: 20150910
  24. EPOPROSTENOL ACT [Suspect]
     Active Substance: EPOPROSTENOL
     Dosage: 20.57 NG/KG, PER MIN
     Route: 042
     Dates: start: 20150911, end: 20150929
  25. EPOPROSTENOL ACT [Suspect]
     Active Substance: EPOPROSTENOL
     Dosage: 95.2 NG/KG, PER MIN
     Route: 042
     Dates: start: 20170601
  26. ADEMPAS [Suspect]
     Active Substance: RIOCIGUAT
     Dosage: 0.5-1MG/TID
     Route: 048
     Dates: start: 20170519, end: 20170529
  27. ADCIRCA [Suspect]
     Active Substance: TADALAFIL
     Indication: PULMONARY ARTERIAL HYPERTENSION
     Dosage: 5 MG, QD
     Route: 048
     Dates: start: 20160418, end: 20160510
  28. CEFACLOR. [Concomitant]
     Active Substance: CEFACLOR
  29. K-SUPPLY [Concomitant]
     Active Substance: POTASSIUM CHLORIDE
  30. TRANEXAMIC ACID. [Suspect]
     Active Substance: TRANEXAMIC ACID
     Indication: PRODUCT USED FOR UNKNOWN INDICATION
     Dosage: UNK
     Route: 065
     Dates: end: 20161025
  31. EPOPROSTENOL ACT [Suspect]
     Active Substance: EPOPROSTENOL
     Dosage: 75.0 NG/KG, PER MIN
     Route: 042
     Dates: start: 20160804
  32. REVATIO [Concomitant]
     Active Substance: SILDENAFIL CITRATE
  33. ADEMPAS [Suspect]
     Active Substance: RIOCIGUAT
     Indication: PULMONARY ARTERIAL HYPERTENSION
     Dosage: 0.5 MG, TID
     Route: 048
     Dates: start: 20150804, end: 20150814
  34. ADEMPAS [Suspect]
     Active Substance: RIOCIGUAT
     Dosage: 1.5 MG, TID
     Route: 048
     Dates: start: 20161213, end: 20170518
  35. FUROSEMIDE. [Concomitant]
     Active Substance: FUROSEMIDE
  36. EPOPROSTENOL ACT [Suspect]
     Active Substance: EPOPROSTENOL
     Dosage: 26.6 NG/KG, PER MIN
     Route: 042
     Dates: start: 20150930
  37. EPOPROSTENOL ACT [Suspect]
     Active Substance: EPOPROSTENOL
     Dosage: 82 NG/KG, PER MIN
     Route: 042
     Dates: end: 20161219
  38. EPOPROSTENOL ACT [Suspect]
     Active Substance: EPOPROSTENOL
     Dosage: 92.3 NG/KG, PER MIN
     Route: 042
     Dates: end: 20170530
  39. OPSUMIT [Suspect]
     Active Substance: MACITENTAN
     Indication: PULMONARY ARTERIAL HYPERTENSION
     Dosage: 10 MG, QD
     Route: 048
     Dates: start: 20150731
  40. CEFZON [Concomitant]
     Active Substance: CEFDINIR
  41. BIOFERMIN [Concomitant]
     Active Substance: BACILLUS SUBTILIS\LACTOBACILLUS ACIDOPHILUS\STREPTOCOCCUS FAECAIS
  42. MEROPENEM. [Concomitant]
     Active Substance: MEROPENEM
  43. ZITHROMAC [Concomitant]
     Active Substance: AZITHROMYCIN DIHYDRATE
  44. TAZOPIP [Concomitant]
     Active Substance: PIPERACETAZINE\TAZOBACTAM

REACTIONS (12)
  - Transfusion [Unknown]
  - Headache [Recovering/Resolving]
  - Concomitant disease aggravated [Recovering/Resolving]
  - Eosinophilic pneumonia [Recovered/Resolved]
  - Kidney congestion [Recovering/Resolving]
  - Catheter management [Unknown]
  - Pulmonary hypertension [Recovering/Resolving]
  - Pneumonia [Recovered/Resolved]
  - Pyrexia [Recovered/Resolved]
  - Right ventricular failure [Recovering/Resolving]
  - Haemoptysis [Recovered/Resolved]
  - Anaemia [Recovered/Resolved]

NARRATIVE: CASE EVENT DATE: 20150821
